FAERS Safety Report 18422624 (Version 1)
Quarter: 2020Q4

REPORT INFORMATION
  Report Type: Spontaneous
  Country: US (occurrence: US)
  Receive Date: 20201024
  Receipt Date: 20201024
  Transmission Date: 20210114
  Serious: Yes (Other)
  Sender: FDA-Public Use
  Company Number: US-BION-009146

PATIENT
  Age: 43 Year
  Sex: Male

DRUGS (6)
  1. METHOCARBAMOL. [Suspect]
     Active Substance: METHOCARBAMOL
     Indication: BACK PAIN
  2. BENZONATATE. [Suspect]
     Active Substance: BENZONATATE
     Indication: COUGH
  3. AZITHROMYCIN ANHYDROUS. [Suspect]
     Active Substance: AZITHROMYCIN ANHYDROUS
     Indication: COVID-19
     Dosage: THEN 250 MG ON DAYS 2-5
     Route: 048
  4. QUETIAPINE/QUETIAPINE FUMARATE [Concomitant]
     Active Substance: QUETIAPINE FUMARATE
     Indication: INSOMNIA
  5. MIDAZOLAM. [Concomitant]
     Active Substance: MIDAZOLAM
     Indication: MENTAL STATUS CHANGES
     Route: 042
  6. SALBUTAMOL [Concomitant]
     Active Substance: ALBUTEROL
     Indication: COUGH

REACTIONS (2)
  - Product use in unapproved indication [Not Recovered/Not Resolved]
  - Catatonia [Recovered/Resolved]
